FAERS Safety Report 14229973 (Version 1)
Quarter: 2017Q4

REPORT INFORMATION
  Report Type: Spontaneous
  Country: US (occurrence: None)
  Receive Date: 20171127
  Receipt Date: 20171127
  Transmission Date: 20180321
  Serious: Yes (Hospitalization)
  Sender: FDA-Public Use
  Company Number: None

PATIENT
  Age: 73 Year
  Sex: Female

DRUGS (6)
  1. GENGRAF [Suspect]
     Active Substance: CYCLOSPORINE
     Indication: MALIGNANT MELANOMA
     Dosage: 25 MG 5 DAILY ORALLY
     Route: 048
     Dates: start: 20170923
  2. CEPHALEXIN. [Concomitant]
     Active Substance: CEPHALEXIN
  3. MAGNESIUM [Concomitant]
     Active Substance: MAGNESIUM
  4. ZOLOFT [Concomitant]
     Active Substance: SERTRALINE HYDROCHLORIDE
  5. CIPROFLOXACN [Concomitant]
     Active Substance: CIPROFLOXACIN
  6. CALCIUM [Concomitant]
     Active Substance: CALCIUM

REACTIONS (3)
  - Fatigue [None]
  - Condition aggravated [None]
  - Lymphoma [None]

NARRATIVE: CASE EVENT DATE: 2017
